FAERS Safety Report 21907500 (Version 1)
Quarter: 2023Q1

REPORT INFORMATION
  Report Type: Spontaneous
  Country: AU (occurrence: AU)
  Receive Date: 20230125
  Receipt Date: 20230125
  Transmission Date: 20230418
  Serious: Yes (Hospitalization)
  Sender: FDA-Public Use
  Company Number: AU-009507513-2301AUS008222

PATIENT
  Age: 71 Year
  Sex: Female

DRUGS (1)
  1. LAGEVRIO [Suspect]
     Active Substance: MOLNUPIRAVIR
     Dosage: UNK
     Route: 048
     Dates: start: 20220307, end: 20220311

REACTIONS (9)
  - Acute kidney injury [Recovering/Resolving]
  - Blood creatinine increased [Unknown]
  - Fluid retention [Recovering/Resolving]
  - Hyponatraemia [Recovering/Resolving]
  - Oliguria [Recovering/Resolving]
  - Renal tubular necrosis [Recovering/Resolving]
  - Symptom recurrence [Recovering/Resolving]
  - Tubulointerstitial nephritis [Recovering/Resolving]
  - Vomiting [Recovering/Resolving]

NARRATIVE: CASE EVENT DATE: 20220316
